FAERS Safety Report 4341885-7 (Version None)
Quarter: 2004Q2

REPORT INFORMATION
  Report Type: 
  Country: None (occurrence: None)
  Receive Date: 20040415
  Receipt Date: 20040330
  Transmission Date: 20050107
  Serious: Yes (Hospitalization)
  Sender: FDA-Public Use
  Company Number: US_0404101962

PATIENT
  Age: 71 Year
  Sex: Female
  Weight: 70 kg

DRUGS (8)
  1. HUMULIN N [Suspect]
     Indication: DIABETES MELLITUS
     Dosage: 15 U DAY
  2. HUMALOG [Suspect]
     Indication: DIABETES MELLITUS
     Dates: start: 20040312
  3. HUMULIN R [Suspect]
     Indication: DIABETES MELLITUS
     Dosage: 15 U DAY
  4. PREDNISONE [Concomitant]
  5. MICRONASE [Concomitant]
  6. GLUCOPHAGE [Concomitant]
  7. ACTOS [Concomitant]
  8. LANTUS [Concomitant]

REACTIONS (4)
  - BLOOD GLUCOSE INCREASED [None]
  - INFLUENZA [None]
  - PHARMACEUTICAL PRODUCT COMPLAINT [None]
  - PNEUMONIA [None]
